FAERS Safety Report 19897831 (Version 1)
Quarter: 2021Q3

REPORT INFORMATION
  Report Type: Spontaneous
  Country: FR (occurrence: FR)
  Receive Date: 20210930
  Receipt Date: 20210930
  Transmission Date: 20211014
  Serious: Yes (Hospitalization, Other)
  Sender: FDA-Public Use
  Company Number: FR-SA-2021SA318856

PATIENT
  Age: 97 Year
  Sex: Female

DRUGS (1)
  1. ZOLPIDEM TARTRATE. [Suspect]
     Active Substance: ZOLPIDEM TARTRATE
     Dosage: 140 MG, QD
     Route: 048
     Dates: start: 20210525, end: 20210525

REACTIONS (7)
  - Altered state of consciousness [Recovered/Resolved]
  - Intentional overdose [Unknown]
  - Miosis [Recovered/Resolved]
  - Poisoning deliberate [Recovered/Resolved]
  - Hypotension [Recovered/Resolved]
  - Oxygen saturation decreased [Recovered/Resolved]
  - Tachycardia [Recovered/Resolved]
